FAERS Safety Report 11589475 (Version 2)
Quarter: 2015Q4

REPORT INFORMATION
  Report Type: Spontaneous
  Country: US (occurrence: US)
  Receive Date: 20151002
  Receipt Date: 20151106
  Transmission Date: 20160304
  Serious: No
  Sender: FDA-Public Use
  Company Number: US-JNJFOC-20150820802

PATIENT
  Sex: Male
  Weight: 72.58 kg

DRUGS (2)
  1. INTUNIV [Concomitant]
     Active Substance: GUANFACINE HYDROCHLORIDE
     Indication: ATTENTION DEFICIT/HYPERACTIVITY DISORDER
     Route: 065
     Dates: start: 201108, end: 201406
  2. CONCERTA [Suspect]
     Active Substance: METHYLPHENIDATE HYDROCHLORIDE
     Indication: ATTENTION DEFICIT/HYPERACTIVITY DISORDER
     Dosage: MORNING BEFORE SCHOOL MONDAY-FRIDAY
     Route: 048
     Dates: start: 201108, end: 201506

REACTIONS (5)
  - Hyperhidrosis [Recovered/Resolved]
  - Excessive ocular convergence [Recovering/Resolving]
  - Eye disorder [Unknown]
  - Drug dose omission [Unknown]
  - Eye movement disorder [Recovering/Resolving]

NARRATIVE: CASE EVENT DATE: 2012
